FAERS Safety Report 9580889 (Version 3)
Quarter: 2014Q2

REPORT INFORMATION
  Report Type: Report from Study
  Country: IT (occurrence: IT)
  Receive Date: 20131002
  Receipt Date: 20140630
  Transmission Date: 20141212
  Serious: Yes (Hospitalization)
  Sender: FDA-Public Use
  Company Number: IT-BAYER-2012-060687

PATIENT
  Age: 76 Year
  Sex: Male
  Weight: 63 kg

DRUGS (3)
  1. REGORAFENIB [Suspect]
     Indication: COLORECTAL CANCER METASTATIC
     Dosage: 40 MG, QID
     Route: 048
     Dates: start: 20120611, end: 20120617
  2. LOSARTAN [Concomitant]
     Indication: HYPERTENSION
     Dosage: 5 MG, QD
     Route: 048
     Dates: start: 201001
  3. ZOMETA [Concomitant]
     Indication: METASTASES TO BONE
     Dosage: DAILY DOSE 40 MG
     Route: 042
     Dates: start: 20110715

REACTIONS (1)
  - Cholangitis [Recovering/Resolving]
